FAERS Safety Report 5927870-X (Version None)
Quarter: 2008Q4

REPORT INFORMATION
  Report Type: 
  Country: None (occurrence: None)
  Receive Date: 20081020
  Receipt Date: 20081020
  Transmission Date: 20090506
  Serious: Yes (Other)
  Sender: FDA-Public Use
  Company Number: None

PATIENT
  Sex: Female
  Weight: 62.5964 kg

DRUGS (7)
  1. OSMOPREP [Suspect]
     Indication: COLONOSCOPY
     Dosage: (SEE SECTION B)
     Dates: start: 20081016
  2. ACTIVELLA [Concomitant]
  3. SYNTHROID [Concomitant]
  4. SERTRALINE [Concomitant]
  5. ZOLPIDEM [Concomitant]
  6. MELATONIN [Concomitant]
  7. ASPIRIN [Concomitant]

REACTIONS (7)
  - ERYTHEMA [None]
  - EYELID OEDEMA [None]
  - FLUSHING [None]
  - OEDEMA MOUTH [None]
  - PRURITUS [None]
  - SNEEZING [None]
  - URTICARIA [None]
